FAERS Safety Report 14225919 (Version 2)
Quarter: 2018Q3

REPORT INFORMATION
  Report Type: Report from Study
  Country: VN (occurrence: VN)
  Receive Date: 20171127
  Receipt Date: 20180731
  Transmission Date: 20181010
  Serious: Yes (Other)
  Sender: FDA-Public Use
  Company Number: VN-ASTELLAS-2017US048828

PATIENT
  Sex: Male

DRUGS (1)
  1. ERLOTINIB [Suspect]
     Active Substance: ERLOTINIB
     Indication: LUNG NEOPLASM MALIGNANT
     Dosage: UNK UNK, UNKNOWN FREQ.
     Route: 048
     Dates: start: 201711

REACTIONS (6)
  - Rash [Recovering/Resolving]
  - Ageusia [Recovering/Resolving]
  - Decreased appetite [Recovering/Resolving]
  - Tongue blistering [Recovering/Resolving]
  - Burn oral cavity [Recovering/Resolving]
  - Acne [Recovering/Resolving]
